FAERS Safety Report 12093124 (Version 1)
Quarter: 2016Q1

REPORT INFORMATION
  Report Type: Spontaneous
  Country: US (occurrence: US)
  Receive Date: 20160219
  Receipt Date: 20160219
  Transmission Date: 20160526
  Serious: No
  Sender: FDA-Public Use
  Company Number: US-TEVA-584702USA

PATIENT

DRUGS (1)
  1. AMPHETAMINE W/DEXTROAMPHETAMINE [Suspect]
     Active Substance: AMPHETAMINE SULFATE\DEXTROAMPHETAMINE
     Route: 048
     Dates: start: 20150609

REACTIONS (9)
  - Drug ineffective [Unknown]
  - Wrong technique in product usage process [Unknown]
  - Impaired driving ability [Unknown]
  - Activities of daily living impaired [Unknown]
  - Product formulation issue [Unknown]
  - Product physical issue [Unknown]
  - Constipation [Unknown]
  - Impaired work ability [Unknown]
  - Therapeutic response unexpected [Unknown]
